FAERS Safety Report 19025989 (Version 1)
Quarter: 2021Q1

REPORT INFORMATION
  Report Type: Spontaneous
  Country: US (occurrence: US)
  Receive Date: 20210318
  Receipt Date: 20210318
  Transmission Date: 20210420
  Serious: Yes (Other)
  Sender: FDA-Public Use
  Company Number: None

PATIENT
  Age: 73 Year
  Sex: Female
  Weight: 101.7 kg

DRUGS (12)
  1. LEVOXYL 125 MCG ONCE DAILY [Concomitant]
  2. CARVEDILOL 3.125 MG TWICE DAILY [Concomitant]
  3. LASIX 20 MG AS NEEDED [Concomitant]
  4. JARDIANCE [Suspect]
     Active Substance: EMPAGLIFLOZIN
     Indication: TYPE 2 DIABETES MELLITUS
     Route: 048
     Dates: start: 20200911, end: 20201002
  5. ASPERCREME 10% LOTION [Concomitant]
  6. METFORMIN 1,000 MG TWICE DAILY [Concomitant]
  7. ELIQUIS 5 MG TWICE DAILY [Concomitant]
  8. DOCUSATE 100 MG DAILY [Concomitant]
  9. PROAIR 1 PUFF EVERY 4?6 HOURS AS NEEDED [Concomitant]
  10. DILTIAZEM ER 360 MG ONCE DAILY [Concomitant]
  11. GLIPIZIDE ER 10 MG ONCE DAILY [Concomitant]
  12. ROSUVASTATIN 5 MG DAILY [Concomitant]

REACTIONS (5)
  - Dry skin [None]
  - Hypersensitivity [None]
  - Pruritus [None]
  - Erythema [None]
  - Rash [None]

NARRATIVE: CASE EVENT DATE: 20201002
